FAERS Safety Report 22525526 (Version 1)
Quarter: 2023Q2

REPORT INFORMATION
  Report Type: Other
  Country: None (occurrence: CN)
  Receive Date: 20230606
  Receipt Date: 20230606
  Transmission Date: 20230722
  Serious: Yes (Other)
  Sender: FDA-Public Use
  Company Number: CN-Guardian Drug Company-2142368

PATIENT
  Age: 40 Year
  Sex: Female

DRUGS (1)
  1. CHILDRENS IBUPROFEN [Suspect]
     Active Substance: IBUPROFEN
     Indication: Pyrexia
     Route: 065

REACTIONS (2)
  - Liver injury [Recovered/Resolved]
  - Acute kidney injury [Recovered/Resolved]
